FAERS Safety Report 17081125 (Version 1)
Quarter: 2019Q4

REPORT INFORMATION
  Report Type: Spontaneous
  Country: US (occurrence: US)
  Receive Date: 20191126
  Receipt Date: 20191126
  Transmission Date: 20200122
  Serious: Yes (Other)
  Sender: FDA-Public Use
  Company Number: None

PATIENT
  Age: 59 Year
  Sex: Female
  Weight: 68.4 kg

DRUGS (4)
  1. WANA SOUR GUMMIES 50:1 CBD/THC [Suspect]
     Active Substance: CANNABIDIOL\.DELTA.8-TETRAHYDROCANNABINOL
     Indication: NIGHTMARE
     Dosage: ?          QUANTITY:1 50MGCBD/20MG THC;OTHER ROUTE:EDIBLE?
     Dates: start: 20191121, end: 20191121
  2. WANA SOUR GUMMIES 50:1 CBD/THC [Suspect]
     Active Substance: CANNABIDIOL\.DELTA.8-TETRAHYDROCANNABINOL
     Indication: PAIN
     Dosage: ?          QUANTITY:1 50MGCBD/20MG THC;OTHER ROUTE:EDIBLE?
     Dates: start: 20191121, end: 20191121
  3. WANA SOUR GUMMIES 50:1 CBD/THC [Suspect]
     Active Substance: CANNABIDIOL\.DELTA.8-TETRAHYDROCANNABINOL
     Indication: INSOMNIA
     Dosage: ?          QUANTITY:1 50MGCBD/20MG THC;OTHER ROUTE:EDIBLE?
     Dates: start: 20191121, end: 20191121
  4. WANA SOUR GUMMIES 50:1 CBD/THC [Suspect]
     Active Substance: CANNABIDIOL\.DELTA.8-TETRAHYDROCANNABINOL
     Indication: POST-TRAUMATIC EPILEPSY
     Dosage: ?          QUANTITY:1 50MGCBD/20MG THC;OTHER ROUTE:EDIBLE?
     Dates: start: 20191121, end: 20191121

REACTIONS (3)
  - Abdominal pain upper [None]
  - Dehydration [None]
  - Vomiting projectile [None]

NARRATIVE: CASE EVENT DATE: 20191121
